FAERS Safety Report 5147764-X (Version None)
Quarter: 2006Q4

REPORT INFORMATION
  Report Type: 
  Country: None (occurrence: None)
  Receive Date: 20061110
  Receipt Date: 20061026
  Transmission Date: 20070319
  Serious: Yes (Hospitalization, Other)
  Sender: FDA-Public Use
  Company Number: US-AVENTIS-200618990US

PATIENT
  Sex: Female

DRUGS (19)
  1. LOVENOX [Suspect]
     Indication: PULMONARY EMBOLISM
     Dates: start: 20060101, end: 20060424
  2. WARFARIN SODIUM [Suspect]
     Indication: PULMONARY EMBOLISM
     Dates: start: 20060101, end: 20060424
  3. CETUXIMAB [Concomitant]
     Indication: COLORECTAL CANCER METASTATIC
     Dates: start: 20051121, end: 20060313
  4. IRINOTECAN HCL [Concomitant]
     Indication: COLORECTAL CANCER METASTATIC
     Dates: start: 20051121, end: 20060313
  5. ATROPINE [Concomitant]
     Dosage: DOSE: UNK
     Dates: start: 20051121
  6. BENADRYL                           /00000402/ [Concomitant]
     Dosage: DOSE: UNK
  7. BENTYL [Concomitant]
     Dosage: DOSE: UNK
     Dates: start: 20060310
  8. CENTRUM                            /00554501/ [Concomitant]
     Dosage: DOSE: UNK
     Dates: start: 20000101
  9. COMPAZINE [Concomitant]
     Dosage: DOSE: UNK
     Dates: start: 20060227
  10. DECADRON [Concomitant]
     Dosage: DOSE: UNK
     Dates: start: 20051122
  11. EMEND [Concomitant]
     Dosage: DOSE: UNK
     Dates: start: 20051212
  12. GENTAMICIN [Concomitant]
     Dosage: DOSE: UNK
     Dates: start: 20060313
  13. HYDROCORTIZONE CREAM 1% [Concomitant]
     Dosage: DOSE: UNK
     Dates: start: 20060112
  14. IMODIUM [Concomitant]
     Dosage: DOSE: UNK
     Dates: start: 20051101
  15. PROCRIT                            /00909301/ [Concomitant]
     Dosage: DOSE: UNK
     Dates: start: 20051205
  16. NEURONTIN [Concomitant]
     Dosage: DOSE: UNK
     Dates: start: 20060213
  17. QUESTRAN [Concomitant]
     Dosage: DOSE: UNK
     Dates: start: 20060227
  18. ZOFRAN [Concomitant]
     Dosage: DOSE: UNK
     Dates: start: 20051128
  19. ZOMETA [Concomitant]
     Dosage: DOSE: UNK
     Dates: start: 20051205

REACTIONS (11)
  - ABDOMINAL DISTENSION [None]
  - ABDOMINAL PAIN [None]
  - ABDOMINAL PAIN LOWER [None]
  - ACTIVATED PARTIAL THROMBOPLASTIN TIME PROLONGED [None]
  - DECREASED APPETITE [None]
  - FLUID RETENTION [None]
  - INTERNATIONAL NORMALISED RATIO INCREASED [None]
  - NAUSEA [None]
  - NEOPLASM MALIGNANT [None]
  - RECTAL HAEMORRHAGE [None]
  - VOMITING [None]
